FAERS Safety Report 7746917-1 (Version None)
Quarter: 2011Q3

REPORT INFORMATION
  Report Type: 
  Country: None (occurrence: None)
  Receive Date: 20110913
  Receipt Date: 20110830
  Transmission Date: 20111222
  Serious: Yes (Other)
  Sender: FDA-Public Use
  Company Number: PHHY2011IE72069

PATIENT
  Sex: Female

DRUGS (17)
  1. MOTILIUM [Concomitant]
     Dosage: 2 DF, TID
  2. CALCIUM CARBONATE [Concomitant]
     Dosage: 1 DF, BID
  3. BISOPROLOL FUMARATE [Concomitant]
     Dosage: 1 DF, BID
  4. DIGOXIN [Concomitant]
     Dosage: 1 DF, QD
  5. MOVIPREP [Concomitant]
     Dosage: 13.8G PDR FOR ORAL SOLN SACHETS 1 SACHET BD
  6. FUROSEMIDE [Concomitant]
     Dosage: 1 DF, QD
  7. COMBIVENT [Concomitant]
     Dosage: 2.5ML NEB SOLN 1 NEBULE QDS NEBULES
  8. KEPPRA [Concomitant]
     Dosage: 250 MG, 1 TAB DAILY
  9. LACTULOSE [Concomitant]
     Dosage: 3.5 G/5ML 10 ML BD PRN
  10. BONIVA [Concomitant]
     Dosage: 1 DF, QMO
  11. ASPIRIN [Concomitant]
     Dosage: 1 DF, QD
  12. CARDURA [Concomitant]
     Dosage: 1 DF, BID
  13. GAVISCON [Concomitant]
     Dosage: 5ML DAILY X 1 BOTTLE PRN
  14. NITROGLYCERIN [Concomitant]
     Dosage: UNK UKN, PRN
     Dates: start: 20110725
  15. RASILEZ [Suspect]
     Dosage: 150 MG, QD
  16. KEPPRA [Concomitant]
     Dosage: 500 MG, 1 TAB DAILY
  17. OMEPRAZOLE [Concomitant]
     Dosage: 1 DF, QD

REACTIONS (1)
  - TRANSIENT ISCHAEMIC ATTACK [None]
